FAERS Safety Report 23258070 (Version 2)
Quarter: 2024Q1

REPORT INFORMATION
  Report Type: Spontaneous
  Country: IT (occurrence: IT)
  Receive Date: 20231204
  Receipt Date: 20240201
  Transmission Date: 20240410
  Serious: Yes (Other)
  Sender: FDA-Public Use
  Company Number: IT-SA-2023SA372439

PATIENT
  Age: 51 Year
  Sex: Female

DRUGS (4)
  1. DUPIXENT [Suspect]
     Active Substance: DUPILUMAB
     Indication: Dermatitis atopic
     Dosage: 600 MG, 1X (LOADING DOSE)
     Route: 058
  2. CORTICOSTEROID NOS [Concomitant]
     Active Substance: CORTICOSTEROID NOS
     Indication: Dermatitis atopic
     Dosage: UNK
     Route: 061
  3. CORTICOSTEROID NOS [Concomitant]
     Active Substance: CORTICOSTEROID NOS
     Dosage: SYSTEMIC
  4. CYCLOSPORINE [Concomitant]
     Active Substance: CYCLOSPORINE
     Indication: Dermatitis atopic

REACTIONS (10)
  - Eczema herpeticum [Recovering/Resolving]
  - Rash vesicular [Recovering/Resolving]
  - Blister [Recovering/Resolving]
  - Pustule [Recovering/Resolving]
  - Erythema [Recovering/Resolving]
  - Skin lesion [Recovering/Resolving]
  - Herpes ophthalmic [Recovered/Resolved]
  - Periorbital oedema [Recovered/Resolved]
  - Ectropion [Recovered/Resolved]
  - Ulcerative keratitis [Recovered/Resolved]
